FAERS Safety Report 12211612 (Version 5)
Quarter: 2016Q2

REPORT INFORMATION
  Report Type: Spontaneous
  Country: US (occurrence: US)
  Receive Date: 20160325
  Receipt Date: 20160429
  Transmission Date: 20160815
  Serious: Yes (Other)
  Sender: FDA-Public Use
  Company Number: US-TEVA-646805USA

PATIENT
  Age: 48 Year
  Sex: Female

DRUGS (10)
  1. TAMOXIFEN [Suspect]
     Active Substance: TAMOXIFEN
     Indication: BREAST CANCER STAGE III
     Route: 065
  2. WARFARIN [Interacting]
     Active Substance: WARFARIN
     Indication: PULMONARY EMBOLISM
     Dosage: AVERAGE TOTAL WEEKLY DOSE : 23 MG/WEEK
  3. BEVACIZUMAB [Concomitant]
     Active Substance: BEVACIZUMAB
     Indication: BREAST CANCER STAGE III
     Dosage: WEEKLY
  4. PACLITAXEL. [Concomitant]
     Active Substance: PACLITAXEL
     Indication: BREAST CANCER STAGE III
     Dosage: WEEKLY
  5. WARFARIN [Suspect]
     Active Substance: WARFARIN
     Indication: PULMONARY EMBOLISM
     Route: 065
  6. EXEMESTANE. [Interacting]
     Active Substance: EXEMESTANE
     Indication: BREAST CANCER STAGE III
  7. CYCLOPHOSPHAMIDE. [Concomitant]
     Active Substance: CYCLOPHOSPHAMIDE
     Indication: BREAST CANCER STAGE III
     Dosage: FOUR CYCLES
  8. ENOXAPARIN [Concomitant]
     Active Substance: ENOXAPARIN
     Indication: PULMONARY EMBOLISM
  9. BEVACIZUMAB [Concomitant]
     Active Substance: BEVACIZUMAB
     Indication: BREAST CANCER STAGE III
     Dosage: FOUR CYCLES
  10. DOXORUBICIN [Concomitant]
     Active Substance: DOXORUBICIN
     Indication: BREAST CANCER STAGE III
     Dosage: FOUR CYCLES

REACTIONS (3)
  - Pulmonary embolism [Unknown]
  - International normalised ratio increased [Recovered/Resolved]
  - Drug interaction [Recovered/Resolved]
